FAERS Safety Report 5278693-9 (Version None)
Quarter: 2007Q1

REPORT INFORMATION
  Report Type: 
  Country: None (occurrence: None)
  Receive Date: 20070328
  Receipt Date: 20070321
  Transmission Date: 20070707
  Serious: Yes (Other)
  Sender: FDA-Public Use
  Company Number: US-AMGEN-US216215

PATIENT
  Sex: Female

DRUGS (2)
  1. ENBREL [Suspect]
     Route: 058
     Dates: start: 20050101
  2. METHOTREXATE [Concomitant]
     Route: 065
     Dates: start: 19920101

REACTIONS (2)
  - GLAUCOMATOCYCLITIC CRISES [None]
  - HERPES OPHTHALMIC [None]
